FAERS Safety Report 8834016 (Version 1)
Quarter: 2012Q4

REPORT INFORMATION
  Report Type: 
  Country: US (occurrence: US)
  Receive Date: 20121010
  Receipt Date: 20121010
  Transmission Date: 20130627
  Serious: Yes (Other)
  Sender: FDA-Public Use
  Company Number: PHHY2012US086759

PATIENT
  Age: 32 Year
  Sex: Male

DRUGS (7)
  1. ATORVASTATIN [Suspect]
     Indication: HYPERCHOLESTEROLAEMIA
     Dosage: 20 mg every morning
     Route: 048
  2. PREDNISONE [Concomitant]
     Indication: CROHN^S DISEASE
     Dosage: 1 DF, QD
     Route: 048
  3. MOXIFLOXACIN [Concomitant]
     Dosage: 400 mg per day
     Route: 048
  4. METRONIDAZOLE [Concomitant]
     Dosage: 500 mg, TID
     Route: 048
  5. BUDESONIDE [Concomitant]
     Indication: RHINITIS ALLERGIC
     Dosage: 2 OT, UNK
  6. VALSARTAN [Concomitant]
     Dosage: 160 mg, UNK
     Route: 048
  7. HYDROCHLOROTHIAZIDE [Concomitant]
     Dosage: 12.5 mg, UNK
     Route: 048

REACTIONS (2)
  - Deafness neurosensory [Not Recovered/Not Resolved]
  - Tinnitus [Not Recovered/Not Resolved]
